FAERS Safety Report 9443580 (Version 2)
Quarter: 2013Q4

REPORT INFORMATION
  Report Type: Spontaneous
  Country: DE (occurrence: None)
  Receive Date: 20130802
  Receipt Date: 20131008
  Transmission Date: 20140711
  Serious: Yes (Hospitalization)
  Sender: FDA-Public Use
  Company Number: AUR-APL-2013-06330

PATIENT
  Age: 52 Year
  Sex: Female

DRUGS (3)
  1. RAMIPRIL (RAMIPRIL) [Suspect]
     Indication: HYPOTHYROIDISM
     Route: 048
  2. SULFASALAZINE (SULFASALAZINE) [Suspect]
     Route: 048
     Dates: start: 20130111
  3. L-THYROXINE [Suspect]
     Route: 048

REACTIONS (1)
  - Cervix carcinoma [None]
